FAERS Safety Report 4686962-6 (Version None)
Quarter: 2005Q2

REPORT INFORMATION
  Report Type: 
  Country: None (occurrence: None)
  Receive Date: 20050606
  Receipt Date: 20050523
  Transmission Date: 20051028
  Serious: Yes (Hospitalization)
  Sender: FDA-Public Use
  Company Number: 2005078146

PATIENT
  Age: 80 Year
  Sex: Male

DRUGS (3)
  1. ZYRTEC [Suspect]
     Indication: PROPHYLAXIS
     Dosage: 10 MG (10 MG, 1 IN 1 D), ORAL
     Route: 048
     Dates: start: 20050327, end: 20050328
  2. ATARAX [Suspect]
     Indication: PROPHYLAXIS
     Dosage: 1 DOSAGE FORM (DAILY), ORAL
     Route: 048
     Dates: start: 20050327, end: 20050328
  3. AK-FLUOR (FLUORESCEIN SODIUM) [Suspect]
     Indication: ANGIOGRAM
     Dosage: INTRAVENOUS
     Route: 042
     Dates: start: 20050329, end: 20050329

REACTIONS (2)
  - CUTANEOUS VASCULITIS [None]
  - VASCULAR PURPURA [None]
